FAERS Safety Report 9229518 (Version 1)
Quarter: 2013Q2

REPORT INFORMATION
  Report Type: Spontaneous
  Country: US (occurrence: US)
  Receive Date: 20130412
  Receipt Date: 20130412
  Transmission Date: 20140414
  Serious: No
  Sender: FDA-Public Use
  Company Number: US-009507513-1304USA004080

PATIENT
  Age: 64 Year
  Sex: Female

DRUGS (6)
  1. PEGINTRON [Suspect]
     Dosage: INJECT 0.4 ML SUBCUTANEOUSLY ONCE A WEEK(120MCG/5ML)
     Route: 058
     Dates: start: 20130404
  2. RIBAPAK [Suspect]
     Dosage: 800/DAY
     Dates: start: 20130404
  3. CHONDROITIN SULFATE SODIUM (+) GLUCOSAMINE SULFATE [Concomitant]
  4. CALCIUM CARBONATE (+) CHOLECALCIFEROL [Concomitant]
  5. LISINOPRIL [Concomitant]
  6. OMEGA-3 MARINE TRIGLYCERIDES [Concomitant]
     Dosage: 120 MG

REACTIONS (2)
  - Pyrexia [Recovered/Resolved]
  - Discomfort [Recovered/Resolved]
